FAERS Safety Report 9414641 (Version 1)
Quarter: 2013Q3

REPORT INFORMATION
  Report Type: Report from Study
  Country: IT (occurrence: IT)
  Receive Date: 20130723
  Receipt Date: 20130723
  Transmission Date: 20140515
  Serious: Yes (Other)
  Sender: FDA-Public Use
  Company Number: IT-PFIZER INC-2013212097

PATIENT
  Age: 4 Month
  Sex: Male

DRUGS (5)
  1. CARBOPLATIN [Suspect]
     Indication: GLIOMA
     Dosage: UNK
  2. CARBOPLATIN [Suspect]
     Dosage: UNK, 2 DOSES
  3. DESMOPRESSIN [Concomitant]
     Indication: DIABETES INSIPIDUS
     Dosage: UNK
  4. ETOPOSIDE [Concomitant]
     Indication: GLIOMA
     Dosage: UNK, CYCLIC
  5. VINCRISTINE [Concomitant]
     Indication: GLIOMA
     Dosage: UNK, 2 DOSES

REACTIONS (2)
  - Ileus paralytic [Unknown]
  - Haematotoxicity [Unknown]
